FAERS Safety Report 20170074 (Version 1)
Quarter: 2021Q4

REPORT INFORMATION
  Report Type: Spontaneous
  Country: US (occurrence: US)
  Receive Date: 20211210
  Receipt Date: 20211210
  Transmission Date: 20220303
  Serious: Yes (Hospitalization)
  Sender: FDA-Public Use
  Company Number: US-MYLANLABS-2021M1090667

PATIENT
  Age: 57 Year
  Sex: Male

DRUGS (2)
  1. SEVELAMER [Suspect]
     Active Substance: SEVELAMER
     Indication: End stage renal disease
     Dosage: UNK
     Route: 065
  2. COUMADIN [Concomitant]
     Active Substance: WARFARIN SODIUM
     Indication: Cardiac failure chronic
     Dosage: UNK
     Route: 065

REACTIONS (2)
  - Colitis ischaemic [Unknown]
  - Crystal deposit intestine [Unknown]
